FAERS Safety Report 25210765 (Version 1)
Quarter: 2025Q2

REPORT INFORMATION
  Report Type: Report from Study
  Country: IT (occurrence: IT)
  Receive Date: 20250417
  Receipt Date: 20250417
  Transmission Date: 20250717
  Serious: Yes (Other)
  Sender: ZAMBON
  Company Number: IT-ZAMBON-202501360COR

PATIENT

DRUGS (1)
  1. FOSFOMYCIN TROMETHAMINE [Suspect]
     Active Substance: FOSFOMYCIN TROMETHAMINE
     Indication: Product used for unknown indication
     Route: 065
     Dates: start: 20250404, end: 20250404

REACTIONS (4)
  - Dyspnoea [Recovering/Resolving]
  - Paraesthesia oral [Recovering/Resolving]
  - Erythema [Recovering/Resolving]
  - Anaphylactic reaction [Recovering/Resolving]

NARRATIVE: CASE EVENT DATE: 20250404
